FAERS Safety Report 5086980-2 (Version None)
Quarter: 2006Q3

REPORT INFORMATION
  Report Type: 
  Country: None (occurrence: None)
  Receive Date: 20060818
  Receipt Date: 20060731
  Transmission Date: 20061208
  Serious: Yes (Hospitalization)
  Sender: FDA-Public Use
  Company Number: US200608000499

PATIENT
  Sex: Female
  Weight: 75.7 kg

DRUGS (2)
  1. ZYPREXA [Suspect]
     Dosage: 2.5 MG
     Dates: start: 20010926, end: 20051101
  2. BUPROPION HCL [Concomitant]

REACTIONS (2)
  - CORONARY ARTERIAL STENT INSERTION [None]
  - DIABETES MELLITUS [None]
